FAERS Safety Report 9748282 (Version 1)
Quarter: 2013Q4

REPORT INFORMATION
  Report Type: Spontaneous
  Country: DE (occurrence: None)
  Receive Date: 20131206
  Receipt Date: 20131206
  Transmission Date: 20140711
  Serious: Yes (Life-Threatening, Other)
  Sender: FDA-Public Use
  Company Number: AUR-APL-2013-09992

PATIENT
  Age: 39 Year
  Sex: Female

DRUGS (4)
  1. SERTRALINE (SERTRALINE) [Suspect]
     Indication: PRODUCT USED FOR UNKNOWN INDICATION
     Dosage: 25 MG, 1 D), ORAL
     Route: 048
     Dates: start: 20130804, end: 20130815
  2. ASS (ACETYLSALICYLIC ACID) [Concomitant]
  3. METOPROLOL (METOPROLOL) [Concomitant]
  4. ATOSIL (PROMETHAZINE HYDROCHLORIDE) [Concomitant]

REACTIONS (1)
  - Completed suicide [None]
